FAERS Safety Report 15227731 (Version 2)
Quarter: 2019Q2

REPORT INFORMATION
  Report Type: Spontaneous
  Country: JP (occurrence: JP)
  Receive Date: 20180801
  Receipt Date: 20190410
  Transmission Date: 20190711
  Serious: Yes (Hospitalization, Other)
  Sender: FDA-Public Use
  Company Number: JP-SA-2018SA198000

PATIENT
  Age: 78 Year
  Sex: Female

DRUGS (4)
  1. ELPLAT [Suspect]
     Active Substance: OXALIPLATIN
     Indication: RECTAL CANCER
     Dosage: INJECTION
     Route: 041
  2. LEVOFOLINATE CALCIUM [Suspect]
     Active Substance: LEVOLEUCOVORIN CALCIUM
     Indication: RECTAL CANCER
     Dosage: INJECTION
     Route: 041
  3. FLUOROURACIL. [Suspect]
     Active Substance: FLUOROURACIL
     Indication: RECTAL CANCER
  4. PANITUMUMAB [Suspect]
     Active Substance: PANITUMUMAB
     Indication: RECTAL CANCER

REACTIONS (8)
  - Visual acuity reduced [Recovering/Resolving]
  - Conjunctival oedema [Recovering/Resolving]
  - Stevens-Johnson syndrome [Recovering/Resolving]
  - Lip swelling [Recovering/Resolving]
  - Conjunctival hyperaemia [Recovering/Resolving]
  - Pitted keratolysis [Recovering/Resolving]
  - Condition aggravated [Recovering/Resolving]
  - Swelling face [Recovering/Resolving]
